FAERS Safety Report 21558967 (Version 1)
Quarter: 2022Q4

REPORT INFORMATION
  Report Type: Spontaneous
  Country: SA (occurrence: SA)
  Receive Date: 20221107
  Receipt Date: 20221107
  Transmission Date: 20230113
  Serious: No
  Sender: FDA-Public Use
  Company Number: SA-ALKEM LABORATORIES LIMITED-SA-ALKEM-2022-00011

PATIENT
  Age: 10 Year
  Sex: Male

DRUGS (4)
  1. CEFTRIAXONE [Suspect]
     Active Substance: CEFTRIAXONE
     Indication: Osteomyelitis
     Dosage: UNK
     Route: 042
  2. CLOXACILLIN [Suspect]
     Active Substance: CLOXACILLIN
     Indication: Osteomyelitis
     Dosage: UNK
     Route: 048
  3. CEFIXIME [Suspect]
     Active Substance: CEFIXIME
     Indication: Osteomyelitis
     Dosage: 11 MILLIGRAM/KILOGRAM
     Route: 048
  4. FLUCLOXACILLIN [Suspect]
     Active Substance: FLUCLOXACILLIN
     Indication: Osteomyelitis
     Dosage: UNK
     Route: 042

REACTIONS (2)
  - Treatment failure [Unknown]
  - Adverse event [Unknown]
